FAERS Safety Report 15405589 (Version 2)
Quarter: 2018Q4

REPORT INFORMATION
  Report Type: Report from Study
  Country: US (occurrence: US)
  Receive Date: 20180920
  Receipt Date: 20181016
  Transmission Date: 20190204
  Serious: Yes (Other)
  Sender: FDA-Public Use
  Company Number: US-ROCHE-2185492

PATIENT
  Age: 59 Year
  Sex: Female
  Weight: 68.55 kg

DRUGS (2)
  1. OCREVUS [Suspect]
     Active Substance: OCRELIZUMAB
     Dosage: 2ND HALF DOSE
     Route: 065
     Dates: start: 20180907
  2. OCREVUS [Suspect]
     Active Substance: OCRELIZUMAB
     Indication: RELAPSING MULTIPLE SCLEROSIS
     Dosage: FIRST HALF DOSE
     Route: 065
     Dates: start: 20180824

REACTIONS (7)
  - Eye infection [Not Recovered/Not Resolved]
  - Hypersomnia [Unknown]
  - Eye pain [Not Recovered/Not Resolved]
  - Eye swelling [Not Recovered/Not Resolved]
  - Oropharyngeal pain [Recovered/Resolved]
  - Blindness unilateral [Not Recovered/Not Resolved]
  - Headache [Recovered/Resolved]

NARRATIVE: CASE EVENT DATE: 20180910
